FAERS Safety Report 9498124 (Version 2)
Quarter: 2013Q4

REPORT INFORMATION
  Report Type: Spontaneous
  Country: GB (occurrence: None)
  Receive Date: 20130830
  Receipt Date: 20131125
  Transmission Date: 20140711
  Serious: Yes (Hospitalization)
  Sender: FDA-Public Use
  Company Number: AUR-APL-2013-07021

PATIENT
  Age: 89 Year
  Sex: Female

DRUGS (12)
  1. CLOPIDOGREL [Suspect]
     Indication: PRODUCT USED FOR UNKNOWN INDICATION
     Dosage: 75 MG (75 MG, 1 IN 1 D), ORAL
     Route: 048
  2. ASPIRIN [Suspect]
  3. DIGOXIN (DIGOXIN) [Concomitant]
  4. FLUDROCORTISIONE (FLUDROCORTISONE) [Concomitant]
  5. LEVOTHYROXINE (LEVOTHYROXINE) [Concomitant]
  6. OMEPRAZOLE (OMEPRAZOLE) [Concomitant]
  7. QUETIAPINE (QUETIAPINE) [Concomitant]
  8. SODIUM BICARBONATE (SODIUM BICARBONATE) [Concomitant]
  9. ZOPICLONE (ZOPICLONE) [Concomitant]
  10. CLENIL MODULITE (BECLOMETASONE DIPROPIONATE) [Concomitant]
  11. SALBUTAMOL (SALBUTAMOL) [Concomitant]
  12. PARACETAMOL (PARACETAMOL) [Concomitant]

REACTIONS (2)
  - Anaemia [None]
  - Dyspnoea [None]
